FAERS Safety Report 9778317 (Version 2)
Quarter: 2014Q1

REPORT INFORMATION
  Report Type: Spontaneous
  Country: RU (occurrence: RU)
  Receive Date: 20131223
  Receipt Date: 20140203
  Transmission Date: 20141002
  Serious: Yes (Hospitalization, Other)
  Sender: FDA-Public Use
  Company Number: RU-BAYER-2013-154796

PATIENT
  Age: 53 Year
  Sex: Female

DRUGS (3)
  1. MIRENA [Suspect]
     Indication: ADENOMYOSIS
     Dosage: 20 MCG/24HR, CONT
     Route: 015
     Dates: start: 20110721, end: 20131029
  2. MIRENA [Suspect]
     Indication: UTERINE LEIOMYOMA
  3. MIRENA [Suspect]
     Indication: ENDOMETRIAL HYPERPLASIA

REACTIONS (6)
  - Vaginal haemorrhage [Recovered/Resolved]
  - Abdominal pain [Recovered/Resolved]
  - Ovarian epithelial cancer [None]
  - Endometrial adenocarcinoma [None]
  - Off label use [None]
  - Metastasis [None]
